FAERS Safety Report 4554485-0 (Version None)
Quarter: 2005Q1

REPORT INFORMATION
  Report Type: 
  Country: None (occurrence: None)
  Receive Date: 20050112
  Receipt Date: 20040924
  Transmission Date: 20050727
  Serious: No
  Sender: FDA-Public Use
  Company Number: CART-10359

PATIENT
  Age: 24 Year
  Sex: Female

DRUGS (1)
  1. CARTICEL [Suspect]
     Indication: BONE DISORDER
     Dosage: 1 ONCE IS
     Dates: start: 19970307, end: 19970307

REACTIONS (3)
  - EXOSTOSIS [None]
  - JOINT LOCK [None]
  - LOOSE BODY IN JOINT [None]
